FAERS Safety Report 19599911 (Version 1)
Quarter: 2021Q3

REPORT INFORMATION
  Report Type: Other
  Country: US (occurrence: US)
  Receive Date: 20210722
  Receipt Date: 20210722
  Transmission Date: 20211014
  Serious: Yes (Hospitalization, Disabling)
  Sender: FDA-Public Use
  Company Number: US-C B FLEET CO INC-202107-US-002341

PATIENT
  Age: 70 Year
  Sex: Female

DRUGS (14)
  1. INSULIN DETEMIR [Concomitant]
     Active Substance: INSULIN DETEMIR
  2. HYDROCODONE [Concomitant]
     Active Substance: HYDROCODONE
     Indication: BREAKTHROUGH PAIN
  3. HYDROCHLOROTHIAZIDE. [Concomitant]
     Active Substance: HYDROCHLOROTHIAZIDE
  4. CARVEDILOL. [Concomitant]
     Active Substance: CARVEDILOL
  5. TRIAMCINOLONE [Concomitant]
     Active Substance: TRIAMCINOLONE
     Indication: EPIDURAL INJECTION
  6. PREGABALIN. [Concomitant]
     Active Substance: PREGABALIN
  7. ASPIRIN. [Suspect]
     Active Substance: ASPIRIN
     Indication: ANTICOAGULANT THERAPY
     Dosage: 81MG DAILY
     Route: 048
  8. DULOXETINE. [Suspect]
     Active Substance: DULOXETINE
     Indication: FIBROMYALGIA
     Dosage: 60MG DAILY
     Route: 048
  9. LIDOCAINE. [Concomitant]
     Active Substance: LIDOCAINE
     Indication: EPIDURAL INJECTION
  10. INSULIN ASPART [Concomitant]
     Active Substance: INSULIN ASPART
  11. ROSUVASTATIN. [Concomitant]
     Active Substance: ROSUVASTATIN
     Route: 048
  12. LEVOTHYROXINE. [Concomitant]
     Active Substance: LEVOTHYROXINE
  13. MIDAZOLAM. [Concomitant]
     Active Substance: MIDAZOLAM
  14. LOSARTAN. [Concomitant]
     Active Substance: LOSARTAN

REACTIONS (1)
  - Spinal epidural haematoma [Not Recovered/Not Resolved]
